FAERS Safety Report 5573888-9 (Version None)
Quarter: 2007Q4

REPORT INFORMATION
  Report Type: 
  Country: None (occurrence: None)
  Receive Date: 20071226
  Receipt Date: 20071218
  Transmission Date: 20080405
  Serious: Yes (Other)
  Sender: FDA-Public Use
  Company Number: IN-ABBOTT-07P-078-0430817-00

PATIENT
  Age: 3 Month
  Sex: Male

DRUGS (1)
  1. SEVOFLURANE [Suspect]
     Indication: INDUCTION OF ANAESTHESIA
     Dosage: NOT REPORTED

REACTIONS (1)
  - PARTIAL SEIZURES [None]
